FAERS Safety Report 10249479 (Version 1)
Quarter: 2014Q2

REPORT INFORMATION
  Report Type: Report from Study
  Country: US (occurrence: US)
  Receive Date: 20140620
  Receipt Date: 20140620
  Transmission Date: 20141212
  Serious: Yes (Other)
  Sender: FDA-Public Use
  Company Number: US-JNJFOC-20140610829

PATIENT
  Age: 62 Year
  Sex: Female
  Weight: 90.72 kg

DRUGS (8)
  1. REMICADE [Suspect]
     Indication: RHEUMATOID ARTHRITIS
     Dosage: MAY BE 100 MG
     Route: 042
     Dates: start: 2006
  2. CYMBALTA [Concomitant]
     Indication: ANTIDEPRESSANT THERAPY
     Route: 065
     Dates: start: 2006
  3. ESTRADIOL [Concomitant]
     Indication: BLOOD OESTROGEN
     Route: 065
  4. LYSINE [Concomitant]
     Indication: ORAL HERPES
     Route: 065
  5. ACYCLOVIR [Concomitant]
     Indication: ORAL HERPES
     Route: 065
  6. METHOTREXATE [Concomitant]
     Indication: RHEUMATOID ARTHRITIS
     Route: 048
     Dates: start: 2006
  7. LIPITOR [Concomitant]
     Indication: BLOOD CHOLESTEROL
     Route: 065
     Dates: start: 2013
  8. CELEBREX [Concomitant]
     Indication: ARTHRITIS
     Route: 065
     Dates: start: 2007

REACTIONS (2)
  - Laceration [Recovering/Resolving]
  - Localised infection [Recovering/Resolving]
